FAERS Safety Report 7022476-6 (Version None)
Quarter: 2010Q3

REPORT INFORMATION
  Report Type: 
  Country: None (occurrence: None)
  Receive Date: 20100930
  Receipt Date: 20090119
  Transmission Date: 20110219
  Serious: Yes (Other)
  Sender: FDA-Public Use
  Company Number: CN-ROCHE-729074

PATIENT
  Sex: Female

DRUGS (2)
  1. CAPECITABINE [Suspect]
     Dosage: GIVEN ON DAYS 1 TO 14. 21 DAYS WAS 1 COURSE.
     Route: 048
  2. NEDAPLATIN [Suspect]
     Dosage: GIVEN ON DAY 1. 21 DAYS WAS A COURSE.
     Route: 041

REACTIONS (12)
  - CYSTITIS RADIATION [None]
  - DIARRHOEA [None]
  - GASTROENTERITIS RADIATION [None]
  - HAEMOGLOBIN DECREASED [None]
  - HEPATIC FUNCTION ABNORMAL [None]
  - LEUKOPENIA [None]
  - PALMAR-PLANTAR ERYTHRODYSAESTHESIA SYNDROME [None]
  - RADIATION SKIN INJURY [None]
  - RENAL IMPAIRMENT [None]
  - STOMATITIS [None]
  - THROMBOCYTOPENIA [None]
  - VOMITING [None]
